FAERS Safety Report 14587310 (Version 1)
Quarter: 2018Q1

REPORT INFORMATION
  Report Type: Spontaneous
  Country: US (occurrence: US)
  Receive Date: 20180228
  Receipt Date: 20180228
  Transmission Date: 20180509
  Serious: No
  Sender: FDA-Public Use
  Company Number: None

PATIENT
  Age: 62 Year
  Sex: Female
  Weight: 68.4 kg

DRUGS (10)
  1. LIOTHYRONINE [Concomitant]
     Active Substance: LIOTHYRONINE
  2. MAGNESIUM [Concomitant]
     Active Substance: MAGNESIUM
  3. FISH OIL [Concomitant]
     Active Substance: FISH OIL
  4. TURMERIC [Concomitant]
     Active Substance: HERBALS\TURMERIC
  5. FOSAMAX [Suspect]
     Active Substance: ALENDRONATE SODIUM
     Indication: OSTEOPENIA
     Dosage: ?          QUANTITY:1 TABLET(S);OTHER FREQUENCY:ONCE A WEEK;?
     Route: 048
  6. FOSAMAX [Suspect]
     Active Substance: ALENDRONATE SODIUM
     Indication: OSTEOPOROSIS
     Dosage: ?          QUANTITY:1 TABLET(S);OTHER FREQUENCY:ONCE A WEEK;?
     Route: 048
  7. VITAMIN D3 [Concomitant]
     Active Substance: CHOLECALCIFEROL
  8. LEVOTHYROXINE. [Concomitant]
     Active Substance: LEVOTHYROXINE
  9. MULTI VITAMIN [Concomitant]
     Active Substance: VITAMINS
  10. CALCIUM [Concomitant]
     Active Substance: CALCIUM

REACTIONS (6)
  - Bone pain [None]
  - Myalgia [None]
  - Loss of personal independence in daily activities [None]
  - Muscular weakness [None]
  - Arthralgia [None]
  - Fatigue [None]

NARRATIVE: CASE EVENT DATE: 20170821
